FAERS Safety Report 9729591 (Version 2)
Quarter: 2014Q1

REPORT INFORMATION
  Report Type: Spontaneous
  Country: US (occurrence: US)
  Receive Date: 20131204
  Receipt Date: 20140106
  Transmission Date: 20141002
  Serious: Yes (Hospitalization)
  Sender: FDA-Public Use
  Company Number: US-INCYTE CORPORATION-2013IN002857

PATIENT
  Age: 84 Year
  Sex: Female
  Weight: 68.03 kg

DRUGS (10)
  1. JAKAFI [Suspect]
     Indication: MYELOFIBROSIS
     Dosage: 5 MG, BID
     Route: 048
     Dates: start: 20130928, end: 20131122
  2. TIMOLOL [Concomitant]
     Route: 031
  3. MECLIZINE [Concomitant]
  4. METFORMIN [Concomitant]
  5. KAYEXALATE [Concomitant]
  6. CRESTOR [Concomitant]
  7. SINGULAR [Concomitant]
  8. CLOPIDOGREL [Concomitant]
  9. ALLOPURINOL [Concomitant]
  10. GABAPENTIN [Concomitant]

REACTIONS (4)
  - Blood potassium increased [Recovered/Resolved]
  - Renal impairment [Recovered/Resolved]
  - Calculus ureteric [Recovered/Resolved]
  - Hydronephrosis [Recovered/Resolved]
